FAERS Safety Report 6701813-3 (Version None)
Quarter: 2010Q2

REPORT INFORMATION
  Report Type: 
  Country: None (occurrence: None)
  Receive Date: 20100427
  Receipt Date: 20100412
  Transmission Date: 20101027
  Serious: Yes (Death, Other)
  Sender: FDA-Public Use
  Company Number: ACO_00711_2010

PATIENT
  Age: 86 Year
  Sex: Male

DRUGS (2)
  1. TIZANIDINE HCL [Suspect]
     Indication: DRUG USE FOR UNKNOWN INDICATION
     Dosage: (1 MG, DAILY ORAL)
     Route: 048
     Dates: end: 20100317
  2. RISPERDAL [Suspect]
     Indication: AGITATION
     Dosage: (2 MG QD ORAL)
     Route: 048
     Dates: start: 20100407

REACTIONS (3)
  - AGITATION [None]
  - MUSCULOSKELETAL STIFFNESS [None]
  - PYREXIA [None]
